FAERS Safety Report 26117004 (Version 2)
Quarter: 2025Q4

REPORT INFORMATION
  Report Type: Report from Study
  Country: BR (occurrence: BR)
  Receive Date: 20251203
  Receipt Date: 20251205
  Transmission Date: 20260118
  Serious: Yes (Other)
  Sender: NOVARTIS
  Company Number: BR-002147023-NVSC2025BR157760

PATIENT
  Age: 39 Year
  Sex: Female
  Weight: 52 kg

DRUGS (9)
  1. KISQALI [Suspect]
     Active Substance: RIBOCICLIB SUCCINATE
     Indication: Breast cancer
     Dosage: UNK
     Route: 048
     Dates: start: 202505
  2. KISQALI [Suspect]
     Active Substance: RIBOCICLIB SUCCINATE
     Indication: Metastases to bone
     Dosage: 3 DOSAGE FORM, QD AT NIGHT
     Route: 048
  3. KISQALI [Suspect]
     Active Substance: RIBOCICLIB SUCCINATE
     Indication: Metastases to liver
     Dosage: 400 MG, OTHER, OTHER - TAKE  TWO TABLETS  (400MG)  ONCE A DAY,  WITH OR  WITHOUT FOOD,  FOR 3 WEEKS,
     Route: 048
  4. FEMARA [Suspect]
     Active Substance: LETROZOLE
     Indication: Metastases to liver
     Dosage: UNK
     Route: 065
     Dates: start: 202505
  5. FEMARA [Suspect]
     Active Substance: LETROZOLE
     Indication: Metastases to bone
     Dosage: 2.5 MG, OTHER - TAKE  ONE TABLET  ONCE A DAY  REGULARLY
     Route: 048
  6. FEMARA [Suspect]
     Active Substance: LETROZOLE
     Indication: Breast cancer
     Dosage: 2.5 MG, QD AT NIGHT
     Route: 048
     Dates: start: 20251027
  7. FEMARA [Suspect]
     Active Substance: LETROZOLE
     Dosage: UNK
     Route: 048
  8. ZOMETA [Suspect]
     Active Substance: ZOLEDRONIC ACID
     Indication: Breast cancer
     Dosage: UNK
     Route: 042
  9. GOSERELIN [Concomitant]
     Active Substance: GOSERELIN
     Indication: Product used for unknown indication
     Dosage: UNK
     Route: 065

REACTIONS (25)
  - Neutropenia [Recovering/Resolving]
  - Breast cancer metastatic [Not Recovered/Not Resolved]
  - Malignant neoplasm progression [Not Recovered/Not Resolved]
  - Metastases to bone [Unknown]
  - Thrombocytopenia [Not Recovered/Not Resolved]
  - Leukopenia [Unknown]
  - White blood cell count decreased [Recovering/Resolving]
  - Hepatic enzyme abnormal [Unknown]
  - Hepatic mass [Unknown]
  - Haemoglobin decreased [Recovering/Resolving]
  - Haematocrit decreased [Recovering/Resolving]
  - Blood bilirubin increased [Recovered/Resolved]
  - Bilirubin conjugated increased [Recovering/Resolving]
  - Gamma-glutamyltransferase increased [Recovering/Resolving]
  - Aspartate aminotransferase increased [Recovering/Resolving]
  - Alanine aminotransferase increased [Recovering/Resolving]
  - Red blood cell count decreased [Unknown]
  - Red cell distribution width increased [Unknown]
  - Mean cell volume increased [Unknown]
  - Mean cell haemoglobin increased [Unknown]
  - Neutrophil count decreased [Unknown]
  - Eosinophil count decreased [Unknown]
  - Macrocytosis [Unknown]
  - Blood creatinine increased [Recovered/Resolved]
  - Laboratory test abnormal [Unknown]

NARRATIVE: CASE EVENT DATE: 20250524
